FAERS Safety Report 5057594-5 (Version None)
Quarter: 2006Q3

REPORT INFORMATION
  Report Type: 
  Country: None (occurrence: None)
  Receive Date: 20060721
  Receipt Date: 20051212
  Transmission Date: 20061208
  Serious: No
  Sender: FDA-Public Use
  Company Number: US-GLAXOSMITHKLINE-A0585517A

PATIENT
  Age: 56 Year
  Sex: Female

DRUGS (9)
  1. AVANDIA [Suspect]
     Dosage: 8MG PER DAY
     Route: 048
     Dates: start: 20051205, end: 20051208
  2. GLUCOPHAGE [Concomitant]
  3. AMARYL [Concomitant]
  4. DILTIAZEM HCL [Concomitant]
  5. COZAAR [Concomitant]
  6. CLONOPIN [Concomitant]
     Route: 065
  7. ESTRADIOL [Concomitant]
  8. PROMETRIUM [Concomitant]
     Route: 065
  9. CYTOMEL [Concomitant]

REACTIONS (4)
  - CHEST PAIN [None]
  - OEDEMA [None]
  - POLLAKIURIA [None]
  - WEIGHT INCREASED [None]
